FAERS Safety Report 4414031-9 (Version None)
Quarter: 2004Q3

REPORT INFORMATION
  Report Type: 
  Country: None (occurrence: None)
  Receive Date: 20040803
  Receipt Date: 20040730
  Transmission Date: 20050211
  Serious: Yes (Hospitalization, Other)
  Sender: FDA-Public Use
  Company Number: US-GLAXOSMITHKLINE-A0520388A

PATIENT
  Age: 75 Year
  Sex: Female

DRUGS (4)
  1. LAMICTAL [Suspect]
     Indication: DEPRESSION
     Dosage: 25MG PER DAY
     Route: 048
     Dates: start: 20040702, end: 20040707
  2. ATENOLOL [Concomitant]
     Indication: HYPERTENSION
  3. PROZAC [Concomitant]
  4. CARDIAC MEDICATION [Concomitant]
     Indication: ATRIAL FIBRILLATION

REACTIONS (2)
  - CHEST PAIN [None]
  - HYPERTENSION [None]
